FAERS Safety Report 6166623-7 (Version None)
Quarter: 2009Q2

REPORT INFORMATION
  Report Type: 
  Country: None (occurrence: None)
  Receive Date: 20090424
  Receipt Date: 20090219
  Transmission Date: 20091009
  Serious: No
  Sender: FDA-Public Use
  Company Number: US-ASTRAZENECA-2009UW04837

PATIENT
  Sex: Male

DRUGS (2)
  1. ZOMIG [Suspect]
     Route: 048
  2. ZOMIG [Suspect]
     Route: 048

REACTIONS (3)
  - HEADACHE [None]
  - INCORRECT DOSE ADMINISTERED [None]
  - VOMITING [None]
